FAERS Safety Report 6206096-9 (Version None)
Quarter: 2009Q2

REPORT INFORMATION
  Report Type: 
  Country: None (occurrence: None)
  Receive Date: 20090528
  Receipt Date: 20081105
  Transmission Date: 20091009
  Serious: No
  Sender: FDA-Public Use
  Company Number: US-KINGPHARMUSA00001-K200801272

PATIENT
  Age: 69 Year
  Sex: Female

DRUGS (3)
  1. AVINZA [Suspect]
     Indication: BACK PAIN
     Dosage: 120 MG, QD
     Route: 048
  2. SKELAXIN [Concomitant]
     Indication: BACK PAIN
     Dosage: UNK
     Route: 048
     Dates: start: 20081001
  3. THYROID TAB [Concomitant]
     Dosage: UNK
     Dates: start: 20081001

REACTIONS (1)
  - DRUG INEFFECTIVE [None]
